FAERS Safety Report 6812719-3 (Version None)
Quarter: 2010Q3

REPORT INFORMATION
  Report Type: 
  Country: None (occurrence: None)
  Receive Date: 20100701
  Receipt Date: 20100625
  Transmission Date: 20110219
  Serious: Yes (Death, Hospitalization)
  Sender: FDA-Public Use
  Company Number: A0866111A

PATIENT
  Sex: Female
  Weight: 51 kg

DRUGS (2)
  1. TYKERB [Suspect]
     Route: 065
  2. XELODA [Concomitant]
     Route: 065

REACTIONS (6)
  - DEATH [None]
  - DYSPNOEA [None]
  - LYMPHANGIOSIS CARCINOMATOSA [None]
  - MALIGNANT NEOPLASM PROGRESSION [None]
  - PULMONARY CONGESTION [None]
  - PULMONARY EMBOLISM [None]
